FAERS Safety Report 17304781 (Version 1)
Quarter: 2020Q1

REPORT INFORMATION
  Report Type: Spontaneous
  Country: US (occurrence: US)
  Receive Date: 20200106
  Receipt Date: 20200106
  Transmission Date: 20200409
  Serious: No
  Sender: FDA-Public Use
  Company Number: None

PATIENT
  Age: 70 Year
  Sex: Male

DRUGS (1)
  1. VERZENIO [Suspect]
     Active Substance: ABEMACICLIB
     Route: 048
     Dates: start: 2019

REACTIONS (5)
  - Surgery [None]
  - Haemorrhagic diathesis [None]
  - White blood cell count decreased [None]
  - Impaired healing [None]
  - Infection [None]

NARRATIVE: CASE EVENT DATE: 20200106
